FAERS Safety Report 5765329-3 (Version None)
Quarter: 2008Q2

REPORT INFORMATION
  Report Type: 
  Country: None (occurrence: None)
  Receive Date: 20080611
  Receipt Date: 20080606
  Transmission Date: 20081010
  Serious: Yes (Death)
  Sender: FDA-Public Use
  Company Number: US-WYE-H04410408

PATIENT

DRUGS (1)
  1. PRISTIQ [Suspect]
     Dosage: DOSE UNKNOWN
     Route: 048
     Dates: start: 20080529

REACTIONS (1)
  - DEATH [None]
